FAERS Safety Report 4546880-0 (Version None)
Quarter: 2005Q1

REPORT INFORMATION
  Report Type: 
  Country: None (occurrence: None)
  Receive Date: 20050105
  Receipt Date: 20041217
  Transmission Date: 20050727
  Serious: Yes (Other)
  Sender: FDA-Public Use
  Company Number: FR_041205470

PATIENT
  Age: 65 Year
  Sex: Female

DRUGS (2)
  1. EVISTA [Suspect]
     Indication: OSTEOPOROSIS
     Dosage: 60 MG/1 DAY
     Dates: start: 20030601, end: 20041201
  2. TENORMINE (ATENOLOL EG) [Concomitant]

REACTIONS (2)
  - PURPURA [None]
  - THROMBOCYTOPENIA [None]
